FAERS Safety Report 8423972-7 (Version None)
Quarter: 2012Q2

REPORT INFORMATION
  Report Type: 
  Country: None (occurrence: None)
  Receive Date: 20120608
  Receipt Date: 20120531
  Transmission Date: 20120825
  Serious: Yes (Other)
  Sender: FDA-Public Use
  Company Number: US-ALLERGAN-1207642US

PATIENT
  Age: 23 Year
  Sex: Male

DRUGS (2)
  1. PREDNISOLONE [Suspect]
     Indication: POSTOPERATIVE CARE
     Dosage: UNK
     Route: 047
  2. AMPHOTERICIN B [Concomitant]
     Indication: POSTOPERATIVE CARE
     Dosage: UNK
     Route: 061

REACTIONS (3)
  - KERATITIS BACTERIAL [None]
  - EYE COMPLICATION ASSOCIATED WITH DEVICE [None]
  - ENDOPHTHALMITIS [None]
